FAERS Safety Report 5802745-5 (Version None)
Quarter: 2008Q3

REPORT INFORMATION
  Report Type: 
  Country: None (occurrence: None)
  Receive Date: 20080703
  Receipt Date: 20080620
  Transmission Date: 20090109
  Serious: Yes (Death, Other)
  Sender: FDA-Public Use
  Company Number: A-CH2008-19273

PATIENT
  Age: 45 Year
  Sex: Male

DRUGS (13)
  1. TRACLEER [Suspect]
     Indication: PULMONARY HYPERTENSION
     Dosage: 125 MG, BID, ORAL, 125 MG, BID, ORAL, 62.5 MG, BID, ORAL
     Route: 048
     Dates: start: 20040701, end: 20080220
  2. TRACLEER [Suspect]
     Indication: PULMONARY HYPERTENSION
     Dosage: 125 MG, BID, ORAL, 125 MG, BID, ORAL, 62.5 MG, BID, ORAL
     Route: 048
     Dates: start: 20080221, end: 20080326
  3. TRACLEER [Suspect]
     Indication: PULMONARY HYPERTENSION
     Dosage: 125 MG, BID, ORAL, 125 MG, BID, ORAL, 62.5 MG, BID, ORAL
     Route: 048
     Dates: start: 20080327, end: 20080525
  4. VIAGRA [Concomitant]
  5. ALDACTONE [Concomitant]
  6. LASIX [Concomitant]
  7. LANOXIN [Concomitant]
  8. ADDI-K (POTASSIUM CHLORIDE) [Concomitant]
  9. CALCIUM CARBONATE (CALCIUM CARBONATE) [Concomitant]
  10. BISOPROLOL FUMARATE [Concomitant]
  11. CLONAZEPAM [Concomitant]
  12. ATIVAN [Concomitant]
  13. ILOMEDIN [Concomitant]

REACTIONS (8)
  - CARDIAC ARREST [None]
  - DEEP VEIN THROMBOSIS [None]
  - DIARRHOEA [None]
  - HEPATIC CIRRHOSIS [None]
  - INTERNATIONAL NORMALISED RATIO FLUCTUATION [None]
  - JAUNDICE [None]
  - SPLENOMEGALY [None]
  - SUDDEN CARDIAC DEATH [None]
